FAERS Safety Report 12429431 (Version 2)
Quarter: 2016Q2

REPORT INFORMATION
  Report Type: Spontaneous
  Country: ES (occurrence: ES)
  Receive Date: 20160602
  Receipt Date: 20160608
  Transmission Date: 20160815
  Serious: Yes (Death, Hospitalization, Other)
  Sender: FDA-Public Use
  Company Number: PHHY2016ES074228

PATIENT
  Age: 27 Year
  Sex: Male

DRUGS (15)
  1. MILTEFOSINE [Suspect]
     Active Substance: MILTEFOSINE
     Indication: ANTIFUNGAL TREATMENT
     Dosage: 50 MG, BID
     Route: 065
  2. TERBINAFINE. [Suspect]
     Active Substance: TERBINAFINE
     Indication: SCEDOSPORIUM INFECTION
     Dosage: 250 MG, QD
     Route: 065
  3. VORICONAZOLE. [Suspect]
     Active Substance: VORICONAZOLE
     Indication: INFECTION PROPHYLAXIS
     Dosage: 40 MG, TID NEBULIZATION (VRC 200MG DILUTED IN 20CC OF STERILE WATER AND REMOVE 4CC FROM THE MIXTURE)
     Route: 055
  4. PREDNISONE. [Suspect]
     Active Substance: PREDNISONE
     Indication: IMMUNOSUPPRESSANT DRUG THERAPY
     Dosage: UNK
     Route: 065
  5. AMPHOTERICIN B. [Suspect]
     Active Substance: AMPHOTERICIN B
     Dosage: 25 MG QD, NEBULIZATION (L-AMB 50MG DILUTED IN 12CC OF STERILE WATER AND REMOVE 6CC FROM THE MIXTURE)
     Route: 055
  6. VORICONAZOLE. [Suspect]
     Active Substance: VORICONAZOLE
     Indication: SCEDOSPORIUM INFECTION
     Dosage: 200 MG, BID
     Route: 042
  7. CASPOFUNGIN [Suspect]
     Active Substance: CASPOFUNGIN
     Indication: SCEDOSPORIUM INFECTION
  8. POSACONAZOLE [Suspect]
     Active Substance: POSACONAZOLE
     Indication: ANTIFUNGAL TREATMENT
     Dosage: 300 MG, QD
     Route: 042
  9. POSACONAZOLE [Suspect]
     Active Substance: POSACONAZOLE
     Dosage: 200 MG, QID
     Route: 048
  10. AMPHOTERICIN B. [Suspect]
     Active Substance: AMPHOTERICIN B
     Indication: INFECTION PROPHYLAXIS
     Dosage: 350 MG, QD
     Route: 042
  11. ANIDULAFUNGIN [Suspect]
     Active Substance: ANIDULAFUNGIN
     Indication: ANTIFUNGAL TREATMENT
     Dosage: 100 MG, QD
     Route: 065
  12. CASPOFUNGIN [Suspect]
     Active Substance: CASPOFUNGIN
     Indication: SCEDOSPORIUM INFECTION
     Dosage: 50 MG, QD
     Route: 065
  13. TERBINAFINE. [Suspect]
     Active Substance: TERBINAFINE
     Indication: SCEDOSPORIUM INFECTION
  14. VORICONAZOLE. [Suspect]
     Active Substance: VORICONAZOLE
     Dosage: INTRAPLEURAL INSTILLATIONS WITH VRC (400 MG IN 100 ML OF NORMAL SALINE), BID
     Route: 051
  15. TACROLIMUS. [Suspect]
     Active Substance: TACROLIMUS
     Indication: IMMUNOSUPPRESSANT DRUG THERAPY
     Dosage: UNK
     Route: 065

REACTIONS (10)
  - Lung consolidation [Unknown]
  - Scedosporium infection [Not Recovered/Not Resolved]
  - Dyspnoea [Unknown]
  - Pyrexia [Unknown]
  - Drug resistance [Unknown]
  - Respiratory failure [Unknown]
  - Infectious pleural effusion [Unknown]
  - Cardiac valve vegetation [Unknown]
  - Hepatic enzyme increased [Unknown]
  - Multiple organ dysfunction syndrome [Fatal]
